FAERS Safety Report 12686958 (Version 2)
Quarter: 2016Q3

REPORT INFORMATION
  Report Type: Spontaneous
  Country: FR (occurrence: FR)
  Receive Date: 20160826
  Receipt Date: 20160830
  Transmission Date: 20161109
  Serious: Yes (Hospitalization, Other)
  Sender: FDA-Public Use
  Company Number: FR-ASTRAZENECA-2016SE90035

PATIENT
  Age: 24916 Day
  Sex: Male

DRUGS (2)
  1. ZOLADEX [Suspect]
     Active Substance: GOSERELIN ACETATE
     Indication: PROSTATE CANCER
     Route: 058
     Dates: start: 20160129, end: 201604
  2. ENALAPRIL [Concomitant]
     Active Substance: ENALAPRIL
     Indication: HYPERTENSION

REACTIONS (3)
  - Peripheral artery thrombosis [Recovering/Resolving]
  - Atrial fibrillation [Unknown]
  - Embolism arterial [Recovering/Resolving]

NARRATIVE: CASE EVENT DATE: 20160724
